FAERS Safety Report 24616712 (Version 1)
Quarter: 2024Q4

REPORT INFORMATION
  Report Type: Report from Study
  Country: US (occurrence: US)
  Receive Date: 20241114
  Receipt Date: 20241114
  Transmission Date: 20250115
  Serious: Yes (Other)
  Sender: EXELIXIS
  Company Number: US-EXELIXIS-EXL-2024-002018

PATIENT
  Sex: Female

DRUGS (1)
  1. CABOMETYX [Suspect]
     Active Substance: CABOZANTINIB S-MALATE
     Indication: Renal cancer
     Dosage: 40 MG, QD
     Route: 048

REACTIONS (8)
  - Neuropathy peripheral [Unknown]
  - Fatigue [Unknown]
  - Nausea [Unknown]
  - Taste disorder [Unknown]
  - Gastrooesophageal reflux disease [Unknown]
  - Sleep disorder [Unknown]
  - Arthralgia [Unknown]
  - Depression [Unknown]
